FAERS Safety Report 23422699 (Version 1)
Quarter: 2024Q1

REPORT INFORMATION
  Report Type: Report from Study
  Country: CA (occurrence: CA)
  Receive Date: 20240119
  Receipt Date: 20240119
  Transmission Date: 20240410
  Serious: Yes (Death, Other)
  Sender: FDA-Public Use
  Company Number: CA-JNJFOC-20230962635

PATIENT
  Sex: Male
  Weight: 67 kg

DRUGS (1)
  1. REMICADE [Suspect]
     Active Substance: INFLIXIMAB
     Indication: Rheumatoid arthritis
     Route: 042
     Dates: start: 20190313, end: 20231111

REACTIONS (4)
  - COVID-19 pneumonia [Fatal]
  - Lung neoplasm malignant [Unknown]
  - Blood test abnormal [Unknown]
  - Off label use [Unknown]
